FAERS Safety Report 7819052-1 (Version None)
Quarter: 2011Q4

REPORT INFORMATION
  Report Type: 
  Country: None (occurrence: None)
  Receive Date: 20111012
  Receipt Date: 20110930
  Transmission Date: 20120403
  Serious: Yes (Other)
  Sender: FDA-Public Use
  Company Number: GER/UKI/11/0021395

PATIENT
  Age: 40 Year
  Sex: Male

DRUGS (2)
  1. TOPIRAMATE [Concomitant]
  2. LEVETIRACETAM [Suspect]
     Indication: PARTIAL SEIZURES
     Dosage: 2000

REACTIONS (2)
  - DRUG ABUSE [None]
  - DRUG INEFFECTIVE [None]
